FAERS Safety Report 24529279 (Version 1)
Quarter: 2024Q4

REPORT INFORMATION
  Report Type: Spontaneous
  Country: SE (occurrence: SE)
  Receive Date: 20241021
  Receipt Date: 20241021
  Transmission Date: 20250114
  Serious: Yes (Other)
  Sender: INSUD PHARMA
  Company Number: None

PATIENT
  Age: 27 Year
  Sex: Female

DRUGS (1)
  1. DROSPIRENONE [Suspect]
     Active Substance: DROSPIRENONE
     Indication: Endometriosis
     Dosage: 1 TABLETT PER DAG
     Route: 048
     Dates: start: 20240701

REACTIONS (4)
  - Suicidal ideation [Recovering/Resolving]
  - Irritability [Unknown]
  - Depression [Not Recovered/Not Resolved]
  - Tearfulness [Recovering/Resolving]

NARRATIVE: CASE EVENT DATE: 20240101
